FAERS Safety Report 9905490 (Version 1)
Quarter: 2014Q1

REPORT INFORMATION
  Report Type: Spontaneous
  Country: AU (occurrence: None)
  Receive Date: 20140211
  Receipt Date: 20140211
  Transmission Date: 20141002
  Serious: Yes (Other)
  Sender: FDA-Public Use
  Company Number: 2014000034

PATIENT
  Age: 70 Year
  Sex: Male

DRUGS (10)
  1. ACEON (PERINDOPRIL ERBUMINE) TABLET [Suspect]
     Indication: PRODUCT USED FOR UNKNOWN INDICATION
     Dates: end: 20130721
  2. ALLOPURINOL [Concomitant]
  3. AMLODIPINE [Concomitant]
  4. COLECALCIFEROL [Concomitant]
  5. FOLIC ACID [Concomitant]
  6. METHOTREXATE [Concomitant]
  7. PREDNISOLONE [Concomitant]
  8. SALBUTAMOL [Concomitant]
  9. FLUTICASONE PROPIONATE W/SALMETEROL XINAFOATE [Concomitant]
  10. TIOTROPIUM [Concomitant]

REACTIONS (3)
  - Dysphonia [None]
  - Dysphagia [None]
  - Swollen tongue [None]
